FAERS Safety Report 5454912-0 (Version None)
Quarter: 2007Q3

REPORT INFORMATION
  Report Type: 
  Country: None (occurrence: None)
  Receive Date: 20070917
  Receipt Date: 20061025
  Transmission Date: 20080115
  Serious: No
  Sender: FDA-Public Use
  Company Number: US-ASTRAZENECA-2006UW20577

PATIENT
  Age: 39 Year
  Sex: Male

DRUGS (3)
  1. SEROQUEL [Suspect]
     Indication: DEPRESSION
     Route: 048
  2. XANAX [Concomitant]
  3. PERCOCET [Concomitant]

REACTIONS (3)
  - DYSPHAGIA [None]
  - GLOSSITIS [None]
  - GLOSSODYNIA [None]
